FAERS Safety Report 17327310 (Version 1)
Quarter: 2020Q1

REPORT INFORMATION
  Report Type: Spontaneous
  Country: US (occurrence: US)
  Receive Date: 20200127
  Receipt Date: 20200127
  Transmission Date: 20200409
  Serious: Yes (Hospitalization)
  Sender: FDA-Public Use
  Company Number: US-BRISTOL-MYERS SQUIBB COMPANY-15825334

PATIENT
  Age: 47 Year
  Sex: Male
  Weight: 113 kg

DRUGS (2)
  1. ERLOTINIB [Interacting]
     Active Substance: ERLOTINIB
     Indication: LUNG NEOPLASM MALIGNANT
     Dosage: 150 MG, UNK
     Route: 048
  2. WARFARIN SODIUM. [Suspect]
     Active Substance: WARFARIN SODIUM
     Indication: EMBOLISM VENOUS
     Dosage: STOP FOR 2 DAYS AND RESTART ON DAY9
     Route: 065

REACTIONS (3)
  - Haematoma [Unknown]
  - International normalised ratio increased [Recovered/Resolved]
  - Drug interaction [Unknown]
